FAERS Safety Report 7954076-5 (Version None)
Quarter: 2011Q4

REPORT INFORMATION
  Report Type: 
  Country: None (occurrence: None)
  Receive Date: 20111129
  Receipt Date: 20111114
  Transmission Date: 20120403
  Serious: Yes (Hospitalization, Other)
  Sender: FDA-Public Use
  Company Number: CIP11000524

PATIENT
  Age: 73 Year
  Sex: Female

DRUGS (23)
  1. BACLOFEN [Concomitant]
  2. OXYCODONE W/PARACETAMOL (OXYCODONE, PARACETAMOL) [Concomitant]
  3. METHOCARBAMOL [Concomitant]
  4. ASPIRIN [Concomitant]
  5. ZINC (ZINC) [Concomitant]
  6. ACTONEL [Suspect]
     Dosage: 35 MG WEEKLY, ORAL
     Route: 048
     Dates: start: 20030101
  7. FOSAMAX [Suspect]
     Dosage: 70 MG ONCE WEEKLY, ORAL
     Route: 048
     Dates: start: 20010115, end: 20021220
  8. NEURONTIN [Concomitant]
  9. RECLAST [Concomitant]
  10. SYNTHROID [Concomitant]
  11. SIMCOR	/03020801/ (NICOTINIC ACID, SIMVASTATIN) [Concomitant]
  12. CHROMIUM PICOLINATE (CHROMIUM PICOLINATE) [Concomitant]
  13. CELEBREX [Concomitant]
  14. NEXIUM [Concomitant]
  15. LOVAZA [Concomitant]
  16. ALLEGRA /01314202/ (FEXOFENADINE HYDROCHLORIDE) [Concomitant]
  17. MAGNESIUM (MAGNESIUM) [Concomitant]
  18. COLCHICINE [Concomitant]
  19. CALCIUM CARBONATE [Concomitant]
  20. FISH OIL (FISH OIL) [Concomitant]
  21. CORTICOSTEROIDS [Concomitant]
  22. FOSAMAX [Suspect]
     Dosage: 10 MG DAILY, ORAL
     Route: 048
     Dates: start: 19990310, end: 20001215
  23. BONIVA [Suspect]
     Dosage: 150 MG ONCE MONTHLY, ORAL
     Route: 048
     Dates: start: 20080110, end: 20080314

REACTIONS (28)
  - RADICULITIS LUMBOSACRAL [None]
  - ANAEMIA POSTOPERATIVE [None]
  - PROCEDURAL HYPOTENSION [None]
  - FRACTURE DISPLACEMENT [None]
  - LIMB ASYMMETRY [None]
  - IMPAIRED HEALING [None]
  - CARPAL TUNNEL SYNDROME [None]
  - FALL [None]
  - TRAUMATIC HAEMATOMA [None]
  - PARAESTHESIA [None]
  - DIZZINESS [None]
  - WEIGHT BEARING DIFFICULTY [None]
  - PAIN IN EXTREMITY [None]
  - GROIN PAIN [None]
  - JOINT RANGE OF MOTION DECREASED [None]
  - BALANCE DISORDER [None]
  - OEDEMA PERIPHERAL [None]
  - FRACTURE NONUNION [None]
  - OSTEOARTHRITIS [None]
  - ACTIVITIES OF DAILY LIVING IMPAIRED [None]
  - PERIPHERAL SENSORY NEUROPATHY [None]
  - FEMUR FRACTURE [None]
  - GAIT DISTURBANCE [None]
  - MUSCULAR WEAKNESS [None]
  - ARTHRALGIA [None]
  - HYPOAESTHESIA [None]
  - MUSCULOSKELETAL PAIN [None]
  - THROMBOSIS [None]
